FAERS Safety Report 7602507-2 (Version None)
Quarter: 2011Q3

REPORT INFORMATION
  Report Type: 
  Country: None (occurrence: None)
  Receive Date: 20110707
  Receipt Date: 20110518
  Transmission Date: 20111222
  Serious: Yes (Hospitalization)
  Sender: FDA-Public Use
  Company Number: US-CYPR-2011-000019

PATIENT
  Sex: Male
  Weight: 72.5755 kg

DRUGS (10)
  1. ASPIRIN [Suspect]
     Indication: CORONARY ARTERY DISEASE
     Dosage: (325 MG QD ORAL) ; ((325 MG QD ORAL)
     Route: 048
     Dates: start: 20110101
  2. ASPIRIN [Suspect]
     Indication: CORONARY ARTERY DISEASE
     Dosage: (325 MG QD ORAL) ; ((325 MG QD ORAL)
     Route: 048
     Dates: start: 20091217, end: 20110101
  3. FOLIC ACID [Concomitant]
  4. LEVAQUIN [Concomitant]
  5. CLOPIDOGREL [Suspect]
     Indication: ANTIPLATELET THERAPY
     Dosage: (75 MG QD ORAL) ; (75 MG QD ORAL)
     Route: 048
     Dates: start: 20110528
  6. CLOPIDOGREL [Suspect]
     Indication: ANTIPLATELET THERAPY
     Dosage: (75 MG QD ORAL) ; (75 MG QD ORAL)
     Route: 048
     Dates: start: 20101201, end: 20110505
  7. LEVOTHYROXINE [Concomitant]
  8. ISOSORBIDE MONONITRATE [Concomitant]
  9. LIPITOR [Concomitant]
  10. CYPHER [Concomitant]

REACTIONS (1)
  - CHOLECYSTITIS CHRONIC [None]
